FAERS Safety Report 19465478 (Version 1)
Quarter: 2021Q2

REPORT INFORMATION
  Report Type: Report from Study
  Country: DE (occurrence: DE)
  Receive Date: 20210624
  Receipt Date: 20210624
  Transmission Date: 20210717
  Serious: Yes (Other)
  Sender: FDA-Public Use
  Company Number: NVSC2021DE138705

PATIENT
  Age: 26 Year
  Sex: Male

DRUGS (2)
  1. GALVUS [Suspect]
     Active Substance: VILDAGLIPTIN
     Indication: PRODUCT USED FOR UNKNOWN INDICATION
     Dosage: UNK
     Route: 065
  2. METFORMIN [Suspect]
     Active Substance: METFORMIN HYDROCHLORIDE
     Indication: PRODUCT USED FOR UNKNOWN INDICATION
     Dosage: UNK
     Route: 065

REACTIONS (10)
  - Fatigue [Unknown]
  - Impaired healing [Unknown]
  - Cerebrovascular accident [Unknown]
  - Coronary artery disease [Unknown]
  - Peripheral arterial occlusive disease [Unknown]
  - Sleep apnoea syndrome [Unknown]
  - Transient ischaemic attack [Unknown]
  - Hypoacusis [Unknown]
  - Weight decreased [Unknown]
  - Hypoglycaemia [Unknown]
